FAERS Safety Report 5765154-3 (Version None)
Quarter: 2008Q2

REPORT INFORMATION
  Report Type: 
  Country: None (occurrence: None)
  Receive Date: 20080611
  Receipt Date: 20080602
  Transmission Date: 20081010
  Serious: Yes (Hospitalization)
  Sender: FDA-Public Use
  Company Number: TR-TEVA-172368ISR

PATIENT
  Age: 13 Year
  Sex: Male

DRUGS (1)
  1. METHOTREXATE [Suspect]
     Indication: ACUTE LYMPHOCYTIC LEUKAEMIA

REACTIONS (15)
  - ANAL ULCER [None]
  - CHEST PAIN [None]
  - DYSPHAGIA [None]
  - ERYTHEMA [None]
  - FEBRILE NEUTROPENIA [None]
  - GASTROENTERITIS [None]
  - HAEMOGLOBIN DECREASED [None]
  - HEART RATE INCREASED [None]
  - LIP ULCERATION [None]
  - MOUTH ULCERATION [None]
  - OEDEMA [None]
  - PAIN IN EXTREMITY [None]
  - PAIN OF SKIN [None]
  - PLATELET COUNT DECREASED [None]
  - SKIN EXFOLIATION [None]
